FAERS Safety Report 15275812 (Version 1)
Quarter: 2018Q4

REPORT INFORMATION
  Report Type: Spontaneous
  Country: US (occurrence: US)
  Receive Date: 20180814
  Receipt Date: 20180814
  Transmission Date: 20190204
  Serious: Yes (Hospitalization, Other)
  Sender: FDA-Public Use
  Company Number: US-HIKMA PHARMACEUTICALS USA INC.-US-H14001-18-06825

PATIENT
  Age: 33 Year
  Sex: Female

DRUGS (2)
  1. HYDROMORPHONE [Suspect]
     Active Substance: HYDROMORPHONE
     Indication: PAIN
     Route: 048
  2. HYDROMORPHONE [Suspect]
     Active Substance: HYDROMORPHONE
     Route: 042

REACTIONS (3)
  - Foreign body reaction [Recovering/Resolving]
  - Pulmonary hypertension [Recovering/Resolving]
  - Incorrect route of product administration [Recovering/Resolving]
